FAERS Safety Report 4690734-6 (Version None)
Quarter: 2005Q2

REPORT INFORMATION
  Report Type: 
  Country: None (occurrence: None)
  Receive Date: 20050614
  Receipt Date: 20050614
  Transmission Date: 20051028
  Serious: No
  Sender: FDA-Public Use
  Company Number: None

PATIENT
  Sex: Female
  Weight: 62.1428 kg

DRUGS (4)
  1. DOCETAXEL [Suspect]
     Indication: BREAST CANCER
     Dosage: 101 MG IV EVERY 2 WEEKS TIMES 3
     Route: 042
     Dates: start: 20050511
  2. DOCETAXEL [Suspect]
     Indication: BREAST CANCER
     Dosage: 101 MG IV EVERY 2 WEEKS TIMES 3
     Route: 042
     Dates: start: 20050525
  3. DOCETAXEL [Suspect]
     Indication: BREAST CANCER
     Dosage: 101 MG IV EVERY 2 WEEKS TIMES 3
     Route: 042
     Dates: start: 20050608
  4. ARANESP [Concomitant]

REACTIONS (1)
  - ANAEMIA [None]
